FAERS Safety Report 13727630 (Version 1)
Quarter: 2017Q3

REPORT INFORMATION
  Report Type: Spontaneous
  Country: US (occurrence: US)
  Receive Date: 20170707
  Receipt Date: 20170707
  Transmission Date: 20171127
  Serious: No
  Sender: FDA-Public Use
  Company Number: US-PFIZER INC-2017288676

PATIENT
  Age: 65 Year
  Sex: Female
  Weight: 62.13 kg

DRUGS (3)
  1. EFFEXOR [Suspect]
     Active Substance: VENLAFAXINE HYDROCHLORIDE
     Indication: ANXIETY
     Dosage: UNK
     Route: 048
     Dates: start: 201606, end: 201705
  2. BELVIQ [Suspect]
     Active Substance: LORCASERIN HYDROCHLORIDE
     Indication: WEIGHT DECREASED
     Dosage: 20 MG, 1X/DAY
     Route: 048
     Dates: start: 201705, end: 201705
  3. BELVIQ [Suspect]
     Active Substance: LORCASERIN HYDROCHLORIDE
     Indication: OBESITY
     Dosage: 20 MG, 1X/DAY
     Route: 048
     Dates: start: 201706, end: 20170611

REACTIONS (12)
  - Intentional product misuse [Unknown]
  - Joint swelling [Not Recovered/Not Resolved]
  - Hyperhidrosis [Recovered/Resolved]
  - Weight increased [Not Recovered/Not Resolved]
  - Joint stiffness [Not Recovered/Not Resolved]
  - Ocular hyperaemia [Unknown]
  - Withdrawal syndrome [Unknown]
  - Dizziness [Recovered/Resolved]
  - Gait disturbance [Recovered/Resolved]
  - Eye swelling [Not Recovered/Not Resolved]
  - Nasopharyngitis [Not Recovered/Not Resolved]
  - Arthralgia [Not Recovered/Not Resolved]

NARRATIVE: CASE EVENT DATE: 201705
